FAERS Safety Report 21499278 (Version 1)
Quarter: 2022Q4

REPORT INFORMATION
  Report Type: Spontaneous
  Country: US (occurrence: None)
  Receive Date: 20221023
  Receipt Date: 20221023
  Transmission Date: 20230113
  Serious: Yes (Other)
  Sender: FDA-Public Use
  Company Number: None

PATIENT
  Sex: 0

DRUGS (1)
  1. MONTELUKAST SODIUM [Suspect]
     Active Substance: MONTELUKAST SODIUM
     Indication: Respiratory disorder
     Dosage: OTHER QUANTITY : 1 TABLET(S);?
     Route: 048

REACTIONS (10)
  - Anger [None]
  - Anxiety [None]
  - Fatigue [None]
  - Dyspnoea [None]
  - Alopecia [None]
  - Stress [None]
  - Sneezing [None]
  - Epistaxis [None]
  - Anger [None]
  - Toxicity to various agents [None]

NARRATIVE: CASE EVENT DATE: 20220912
